FAERS Safety Report 5576123-0 (Version None)
Quarter: 2007Q4

REPORT INFORMATION
  Report Type: 
  Country: None (occurrence: None)
  Receive Date: 20071228
  Receipt Date: 20071217
  Transmission Date: 20080405
  Serious: Yes (Other)
  Sender: FDA-Public Use
  Company Number: PHBS2007JP21196

PATIENT

DRUGS (1)
  1. TEGRETOL [Suspect]
     Indication: PAIN
     Route: 048

REACTIONS (1)
  - CONVULSION [None]
